FAERS Safety Report 7909491-2 (Version None)
Quarter: 2011Q4

REPORT INFORMATION
  Report Type: 
  Country: None (occurrence: None)
  Receive Date: 20111111
  Receipt Date: 20111104
  Transmission Date: 20120403
  Serious: Yes (Hospitalization)
  Sender: FDA-Public Use
  Company Number: JP-AMGEN-JPNCT2011014638

PATIENT
  Age: 68 Year
  Sex: Male
  Weight: 64 kg

DRUGS (10)
  1. LOXONIN TABLETS [Suspect]
     Route: 065
  2. PANITUMUMAB [Suspect]
     Dosage: 6 MG, Q2WK
     Dates: start: 20101221, end: 20110301
  3. OXALIPLATIN [Suspect]
     Indication: COLORECTAL CANCER
     Route: 041
     Dates: start: 20100824, end: 20110104
  4. ASPIRIN [Concomitant]
     Dosage: UNK
     Route: 048
  5. FLUOROURACIL [Suspect]
     Indication: COLORECTAL CANCER
     Route: 040
     Dates: start: 20100824, end: 20110104
  6. PANITUMUMAB [Suspect]
     Dosage: 4.8 MG/KG, Q2WK
     Dates: start: 20110517
  7. LEVOLEUCOVORIN CALCIUM [Concomitant]
     Indication: COLORECTAL CANCER
     Route: 041
     Dates: start: 20100824, end: 20110104
  8. PANITUMUMAB [Suspect]
     Dosage: 4.8 MG/KG, Q2WK
     Route: 041
     Dates: start: 20110315, end: 20110425
  9. PANITUMUMAB [Suspect]
     Indication: COLORECTAL CANCER
     Dosage: 6 MG, Q2WK
     Dates: start: 20100712, end: 20101119
  10. ANPLAG [Concomitant]
     Dosage: UNK
     Route: 048

REACTIONS (5)
  - GASTRIC ULCER [None]
  - PARONYCHIA [None]
  - BLOOD CALCIUM DECREASED [None]
  - DERMATITIS ACNEIFORM [None]
  - HYPOMAGNESAEMIA [None]
